FAERS Safety Report 6257774-7 (Version None)
Quarter: 2009Q3

REPORT INFORMATION
  Report Type: 
  Country: None (occurrence: None)
  Receive Date: 20090706
  Receipt Date: 20090626
  Transmission Date: 20100115
  Serious: Yes (Other)
  Sender: FDA-Public Use
  Company Number: US-JNJCH-2009017812

PATIENT
  Age: 21 Year
  Sex: Male
  Weight: 83.9 kg

DRUGS (2)
  1. ROGAINE [Suspect]
     Indication: ALOPECIA
     Dosage: TEXT:HALF A CAPFUL 2 X A DAY
     Route: 061
     Dates: start: 20090612, end: 20090625
  2. PROPECIA [Suspect]
     Indication: ALOPECIA
     Dosage: TEXT:UNSPECIFIED
     Route: 065

REACTIONS (2)
  - RASH [None]
  - SWELLING [None]
